FAERS Safety Report 14258934 (Version 1)
Quarter: 2017Q4

REPORT INFORMATION
  Report Type: Spontaneous
  Country: US (occurrence: US)
  Receive Date: 20171207
  Receipt Date: 20171207
  Transmission Date: 20180321
  Serious: No
  Sender: FDA-Public Use
  Company Number: US-ALLERGAN-1756698US

PATIENT
  Sex: Female

DRUGS (3)
  1. LEVSIN [Concomitant]
     Active Substance: HYOSCYAMINE SULFATE
     Dosage: 0.125 MG, UNK
     Dates: start: 201606
  2. VIBERZI [Suspect]
     Active Substance: ELUXADOLINE
     Indication: IRRITABLE BOWEL SYNDROME
     Dosage: 75 MG, UNK
     Route: 048
     Dates: start: 20170726
  3. VIBERZI [Suspect]
     Active Substance: ELUXADOLINE
     Dosage: 100 MG, UNK
     Route: 048
     Dates: start: 20170726

REACTIONS (3)
  - Asthenia [Unknown]
  - Dizziness [Unknown]
  - Inappropriate schedule of drug administration [Unknown]
